FAERS Safety Report 6013042-X (Version None)
Quarter: 2008Q4

REPORT INFORMATION
  Report Type: 
  Country: None (occurrence: None)
  Receive Date: 20081219
  Receipt Date: 20081215
  Transmission Date: 20090506
  Serious: Yes (Other)
  Sender: FDA-Public Use
  Company Number: US-AVENTIS-200818446US

PATIENT
  Sex: Female

DRUGS (17)
  1. LOVENOX [Suspect]
     Dates: start: 20070814, end: 20080208
  2. MIRALAX [Concomitant]
     Dosage: DOSE: UNK
  3. LEXAPRO [Concomitant]
     Dosage: DOSE: UNK
  4. GEODON                             /01487002/ [Concomitant]
     Dosage: DOSE: UNK
  5. LOPRESSOR [Concomitant]
     Dosage: DOSE: UNK
  6. DITROPAN [Concomitant]
     Dosage: DOSE: UNK
  7. POTASSIUM CHLORIDE [Concomitant]
     Dosage: DOSE: UNK
  8. PREVACID [Concomitant]
     Dosage: DOSE: UNK
  9. EFFEXOR [Concomitant]
     Dosage: DOSE: UNK
  10. MULTIVITAMINS WITH IRON            /02170101/ [Concomitant]
     Dosage: DOSE: UNK
  11. SEROQUEL [Concomitant]
     Dosage: DOSE: UNK
  12. DESYREL [Concomitant]
     Dosage: DOSE: UNK
  13. MACROBID                           /00024401/ [Concomitant]
     Dosage: DOSE: UNK
  14. NYSTATIN [Concomitant]
     Dosage: DOSE: UNK
  15. TYLENOL (CAPLET) [Concomitant]
     Dosage: DOSE: UNK
  16. ATIVAN [Concomitant]
     Dosage: DOSE: UNK
  17. XANAX [Concomitant]
     Dosage: DOSE: UNK

REACTIONS (1)
  - RESPIRATORY FAILURE [None]
